FAERS Safety Report 15546639 (Version 1)
Quarter: 2018Q4

REPORT INFORMATION
  Report Type: Spontaneous
  Country: FR (occurrence: FR)
  Receive Date: 20181024
  Receipt Date: 20181024
  Transmission Date: 20190205
  Serious: Yes (Death)
  Sender: FDA-Public Use
  Company Number: FR-BAYER-2018-194663

PATIENT
  Age: 84 Year
  Sex: Male
  Weight: 45 kg

DRUGS (10)
  1. PANTOPRAZOLE [Suspect]
     Active Substance: PANTOPRAZOLE
     Indication: PRODUCT USED FOR UNKNOWN INDICATION
     Dosage: 40 MG, QD
     Route: 042
     Dates: start: 20170923, end: 20171006
  2. BISOPROLOL [BISOPROLOL FUMARATE] [Suspect]
     Active Substance: BISOPROLOL FUMARATE
     Indication: MYOCARDIAL ISCHAEMIA
     Dosage: 2.5 MG, UNK
     Route: 048
     Dates: end: 20170925
  3. PIPERACILLIN SODIUM [Suspect]
     Active Substance: PIPERACILLIN SODIUM
     Indication: SEPSIS
     Dosage: 12 G, QD
     Route: 042
     Dates: start: 20170912, end: 20170925
  4. CIPROFLOXACIN. [Suspect]
     Active Substance: CIPROFLOXACIN
     Indication: SEPSIS
     Dosage: 1000 MG, QD
     Route: 048
     Dates: start: 20170912, end: 20170925
  5. FRAGMIN [Suspect]
     Active Substance: DALTEPARIN SODIUM
     Indication: PRODUCT USED FOR UNKNOWN INDICATION
     Dosage: 1 DF, QD
     Route: 058
     Dates: start: 20170922, end: 20171007
  6. FLUCONAZOLE. [Suspect]
     Active Substance: FLUCONAZOLE
     Indication: SEPSIS
     Dosage: 400 MG, QD
     Route: 042
     Dates: start: 20170912, end: 20170925
  7. CORDARONE [Suspect]
     Active Substance: AMIODARONE HYDROCHLORIDE
     Indication: ATRIAL FIBRILLATION
     Dosage: 200 MG, QD
     Route: 048
     Dates: start: 201708, end: 20170926
  8. ATROVENT [Concomitant]
     Active Substance: IPRATROPIUM BROMIDE
     Dosage: UNK
  9. TAZOBACTAM [Suspect]
     Active Substance: TAZOBACTAM
     Indication: SEPSIS
     Dosage: 1500 MG, QD
     Route: 042
     Dates: start: 20170912, end: 20170925
  10. TRAMADOL HYDROCHLORIDE. [Suspect]
     Active Substance: TRAMADOL HYDROCHLORIDE
     Indication: PAIN
     Dosage: UNK
     Route: 042

REACTIONS (2)
  - Respiratory distress [Fatal]
  - Interstitial lung disease [Fatal]

NARRATIVE: CASE EVENT DATE: 20170925
